FAERS Safety Report 23015180 (Version 1)
Quarter: 2023Q4

REPORT INFORMATION
  Report Type: Spontaneous
  Country: None (occurrence: GB)
  Receive Date: 20231002
  Receipt Date: 20231002
  Transmission Date: 20240109
  Serious: Yes (Other)
  Sender: FDA-Public Use
  Company Number: GB-Ascend Therapeutics US, LLC-2146558

PATIENT
  Age: 61 Year
  Sex: Female
  Weight: 53 kg

DRUGS (4)
  1. ESTROGEL [Suspect]
     Active Substance: ESTRADIOL
     Indication: Product used for unknown indication
     Route: 065
  2. UTROGESTAN [Suspect]
     Active Substance: PROGESTERONE
     Route: 065
  3. UTROGESTAN [Suspect]
     Active Substance: PROGESTERONE
     Route: 065
  4. ESTRADIOL [Suspect]
     Active Substance: ESTRADIOL
     Route: 065

REACTIONS (1)
  - Tremor [Recovered/Resolved]
